FAERS Safety Report 7213129 (Version 12)
Quarter: 2012Q4

REPORT INFORMATION
  Report Type: Report from Study
  Country: BE (occurrence: BE)
  Receive Date: 20091211
  Receipt Date: 20121123
  Transmission Date: 20130627
  Serious: Yes (Hospitalization)
  Sender: FDA-Public Use
  Company Number: PHHO2009BE14100

PATIENT
  Age: 69 Year
  Sex: Male
  Weight: 93 kg

DRUGS (6)
  1. AFINITOR [Suspect]
     Indication: METASTATIC RENAL CELL CARCINOMA
     Dosage: 5 mg, Q48H
     Route: 048
     Dates: end: 20090118
  2. AFINITOR [Suspect]
     Dosage: 10 mg, QD
     Route: 048
     Dates: start: 20091102, end: 20091112
  3. AFINITOR [Suspect]
     Dosage: 5 mg, QD
     Route: 048
     Dates: start: 20091117, end: 20091129
  4. AFINITOR [Suspect]
     Dosage: 5 mg, QD
     Route: 048
     Dates: start: 20091221, end: 20100112
  5. AVASTIN [Suspect]
     Indication: METASTATIC RENAL CELL CARCINOMA
     Dosage: 10 mg/kg, UNK
     Dates: start: 20091102, end: 20091112
  6. AVASTIN [Suspect]
     Dosage: 10 mg/kg, UNK
     Dates: end: 20100112

REACTIONS (14)
  - Anal abscess [Recovered/Resolved]
  - Mucosal inflammation [Recovered/Resolved]
  - Dysphagia [Recovered/Resolved]
  - Dehydration [Recovered/Resolved]
  - Decreased appetite [Recovered/Resolved]
  - Nausea [Recovered/Resolved]
  - Weight decreased [Recovered/Resolved]
  - Thrombocytopenia [Recovered/Resolved]
  - Haemorrhoids [Recovered/Resolved]
  - Fatigue [Recovered/Resolved]
  - Toothache [Recovered/Resolved]
  - Back pain [Recovered/Resolved]
  - Pain in extremity [Recovered/Resolved]
  - Testicular pain [Recovered/Resolved]
